FAERS Safety Report 7324823-4 (Version None)
Quarter: 2011Q1

REPORT INFORMATION
  Report Type: 
  Country: None (occurrence: None)
  Receive Date: 20110301
  Receipt Date: 20110217
  Transmission Date: 20110831
  Serious: Yes (Hospitalization)
  Sender: FDA-Public Use
  Company Number: US-ELI_LILLY_AND_COMPANY-US201012003334

PATIENT
  Sex: Male

DRUGS (14)
  1. FORTEO [Suspect]
     Indication: OSTEOPOROSIS
     Dosage: 20 UG, DAILY (1/D)
     Route: 065
     Dates: start: 20101202, end: 20101203
  2. ASCORBIC ACID [Concomitant]
     Dosage: UNK, UNKNOWN
     Route: 065
  3. TYLENOL (CAPLET) [Concomitant]
     Dosage: UNK, UNKNOWN
     Route: 065
  4. DEHYDROEPIANDROSTERONE [Concomitant]
     Dosage: UNK, UNKNOWN
     Route: 065
  5. ADVAIR DISKUS 100/50 [Concomitant]
     Dosage: UNK, UNKNOWN
     Route: 065
  6. PREDNISONE [Concomitant]
     Dosage: UNK, UNKNOWN
     Route: 065
  7. WARFARIN [Concomitant]
     Dosage: UNK, UNKNOWN
     Route: 065
  8. AUGMENTIN '125' [Concomitant]
     Dosage: UNK, UNKNOWN
     Route: 065
  9. FUROSEMIDE [Concomitant]
     Dosage: UNK, UNKNOWN
     Route: 065
  10. MULTI-VITAMINS [Concomitant]
     Dosage: UNK, UNKNOWN
     Route: 065
  11. CALCIUM [Concomitant]
     Dosage: UNK, UNKNOWN
     Route: 065
  12. LOVAZA [Concomitant]
     Dosage: UNK, UNKNOWN
     Route: 065
  13. METOPROLOL [Concomitant]
     Dosage: UNK, UNKNOWN
     Route: 065
  14. ARICEPT [Concomitant]
     Dosage: UNK, UNKNOWN
     Route: 065

REACTIONS (1)
  - RESPIRATORY DISORDER [None]
